FAERS Safety Report 14111509 (Version 4)
Quarter: 2017Q4

REPORT INFORMATION
  Report Type: Spontaneous
  Country: KR (occurrence: KR)
  Receive Date: 20171020
  Receipt Date: 20171207
  Transmission Date: 20180321
  Serious: Yes (Other)
  Sender: FDA-Public Use
  Company Number: KR-009507513-1710KOR007742

PATIENT
  Age: 57 Year
  Sex: Female
  Weight: 61.2 kg

DRUGS (10)
  1. NOXAFIL [Suspect]
     Active Substance: POSACONAZOLE
     Dosage: 300 MG, ONCE A DAY
     Route: 048
     Dates: start: 20170908, end: 20171001
  2. CEFAZOLIN [Concomitant]
     Active Substance: CEFAZOLIN
     Indication: INFECTION PROPHYLAXIS
     Dosage: 1 VIAL, ONCE DAILY
     Route: 042
     Dates: start: 20170907, end: 20170907
  3. HYDRINE [Concomitant]
     Indication: ACUTE MYELOID LEUKAEMIA
     Dosage: 1500 MG (3 CAP) / TWICE A DAY
     Route: 048
     Dates: start: 20170905, end: 20170906
  4. DENOGAN [Concomitant]
     Active Substance: PROPACETAMOL HYDROCHLORIDE
     Indication: PYREXIA
     Dosage: 1 VIAL, FIVE TIMES DAY
     Route: 042
     Dates: start: 20170905, end: 20170905
  5. DENOGAN [Concomitant]
     Active Substance: PROPACETAMOL HYDROCHLORIDE
     Dosage: 1 VIAL, ONCE DAILY
     Route: 042
     Dates: start: 20170906, end: 20170907
  6. TAZOBACTAM [Concomitant]
     Active Substance: TAZOBACTAM
     Indication: INFECTION PROPHYLAXIS
     Dosage: 1 VIAL, FOUR TIMES A DAY
     Route: 042
     Dates: start: 20170905, end: 20170922
  7. ALLOPURINOL. [Concomitant]
     Active Substance: ALLOPURINOL
     Indication: PROPHYLAXIS
     Dosage: 100 MG (1 TABLET), THREE TIMES A DAY
     Route: 048
     Dates: start: 20170907, end: 20170913
  8. NOXAFIL [Suspect]
     Active Substance: POSACONAZOLE
     Indication: ANTIFUNGAL PROPHYLAXIS
     Dosage: 300 MG, TWICE A DAY
     Route: 048
     Dates: start: 20170907, end: 20170907
  9. CYTARABINE. [Concomitant]
     Active Substance: CYTARABINE
     Indication: ACUTE MYELOID LEUKAEMIA
     Dosage: 161 MG, ONCE DAILY
     Route: 042
     Dates: start: 20170907, end: 20170913
  10. ZAVEL [Concomitant]
     Active Substance: IDARUBICIN HYDROCHLORIDE
     Indication: ACUTE MYELOID LEUKAEMIA
     Dosage: 19.32 MG, ONCE DAILY
     Route: 042
     Dates: start: 20170907, end: 20170909

REACTIONS (5)
  - Pruritus [Recovered/Resolved]
  - Haemoglobin decreased [Recovered/Resolved]
  - White blood cell count decreased [Recovered/Resolved]
  - Neutrophil count decreased [Recovered/Resolved]
  - Anxiety [Recovered/Resolved]

NARRATIVE: CASE EVENT DATE: 20170908
